FAERS Safety Report 20138522 (Version 13)
Quarter: 2023Q2

REPORT INFORMATION
  Report Type: Spontaneous
  Country: US (occurrence: US)
  Receive Date: 20211202
  Receipt Date: 20230612
  Transmission Date: 20230721
  Serious: Yes (Life-Threatening, Hospitalization, Disabling, Other)
  Sender: FDA-Public Use
  Company Number: US-PFIZER INC-2020481267

PATIENT
  Age: 58 Year
  Sex: Female
  Weight: 61.23 kg

DRUGS (3)
  1. FRAGMIN [Suspect]
     Active Substance: DALTEPARIN SODIUM
     Indication: Antiphospholipid syndrome
     Dosage: 12500 IU, DAILY (12,500 UNIT SYRINGE, INJECT 0.5ML (12500 UNITS) EVERY DAY)
     Route: 058
     Dates: start: 20211123, end: 202211
  2. FRAGMIN [Suspect]
     Active Substance: DALTEPARIN SODIUM
     Indication: Pulmonary embolism
  3. FRAGMIN [Suspect]
     Active Substance: DALTEPARIN SODIUM
     Indication: Cryopyrin associated periodic syndrome

REACTIONS (12)
  - Pulmonary embolism [Not Recovered/Not Resolved]
  - Cerebrovascular accident [Recovered/Resolved with Sequelae]
  - Arrhythmia [Not Recovered/Not Resolved]
  - Memory impairment [Unknown]
  - Visual impairment [Unknown]
  - Pertussis [Recovered/Resolved]
  - Brain injury [Unknown]
  - Transient ischaemic attack [Unknown]
  - Seizure [Unknown]
  - Herpes zoster [Recovered/Resolved with Sequelae]
  - Cough [Unknown]
  - Nodule [Not Recovered/Not Resolved]

NARRATIVE: CASE EVENT DATE: 20221201
